FAERS Safety Report 5877442-0 (Version None)
Quarter: 2008Q3

REPORT INFORMATION
  Report Type: 
  Country: None (occurrence: None)
  Receive Date: 20080909
  Receipt Date: 20080821
  Transmission Date: 20090109
  Serious: Yes (Hospitalization)
  Sender: FDA-Public Use
  Company Number: 1-16554630

PATIENT
  Age: 16 Year
  Sex: Male

DRUGS (1)
  1. SOLODYN [Suspect]
     Indication: ACNE
     Dosage: 90 MG DAILY
     Route: 048
     Dates: start: 20080722, end: 20080701

REACTIONS (2)
  - OEDEMA PERIPHERAL [None]
  - SWELLING [None]
